FAERS Safety Report 12368771 (Version 2)
Quarter: 2016Q2

REPORT INFORMATION
  Report Type: Spontaneous
  Country: PL (occurrence: PL)
  Receive Date: 20160513
  Receipt Date: 20160525
  Transmission Date: 20160815
  Serious: Yes (Life-Threatening, Other)
  Sender: FDA-Public Use
  Company Number: PL-FRESENIUS KABI-FK201602635

PATIENT
  Age: 24 Day

DRUGS (1)
  1. SODIUM CHLORIDE 0.9% SOLUTION FOR INFUSION [Suspect]
     Active Substance: SODIUM CHLORIDE
     Indication: DIAGNOSTIC PROCEDURE
     Route: 042
     Dates: start: 20160505, end: 20160505

REACTIONS (3)
  - Acute respiratory failure [Recovered/Resolved]
  - Cyanosis [Recovered/Resolved]
  - Bradycardia [Recovered/Resolved]

NARRATIVE: CASE EVENT DATE: 20160505
